FAERS Safety Report 19181322 (Version 1)
Quarter: 2021Q2

REPORT INFORMATION
  Report Type: Spontaneous
  Country: TR (occurrence: TR)
  Receive Date: 20210426
  Receipt Date: 20210426
  Transmission Date: 20210717
  Serious: Yes (Death, Life-Threatening, Other)
  Sender: FDA-Public Use
  Company Number: TR-SA-2021SA134102

PATIENT
  Age: 67 Year
  Sex: Male

DRUGS (7)
  1. ZOLEDRONIC ACID. [Suspect]
     Active Substance: ZOLEDRONIC ACID
     Indication: SIGNET-RING CELL CARCINOMA
     Dosage: UNK
     Dates: start: 201910
  2. FLUOROURACIL. [Suspect]
     Active Substance: FLUOROURACIL
     Indication: SIGNET-RING CELL CARCINOMA
     Dosage: 7 COURSES
     Dates: start: 201903
  3. FOLINIC ACID [Concomitant]
     Active Substance: LEUCOVORIN
     Indication: SIGNET-RING CELL CARCINOMA
     Dosage: 7 COURSES
     Dates: start: 201903
  4. OXALIPLATIN. [Suspect]
     Active Substance: OXALIPLATIN
     Indication: SIGNET-RING CELL CARCINOMA
     Dosage: 7 COURSES
     Dates: start: 201903
  5. OXALIPLATIN. [Suspect]
     Active Substance: OXALIPLATIN
     Dosage: UNK
     Dates: start: 202003
  6. FLUOROURACIL. [Suspect]
     Active Substance: FLUOROURACIL
     Dosage: UNK
     Dates: start: 202003
  7. FOLINIC ACID [Concomitant]
     Active Substance: LEUCOVORIN
     Dosage: UNK
     Dates: start: 202003

REACTIONS (5)
  - General physical health deterioration [Fatal]
  - Red blood cell abnormality [Fatal]
  - Myelodysplastic syndrome [Fatal]
  - Thrombocytopenia [Fatal]
  - Pancytopenia [Fatal]
